FAERS Safety Report 22297958 (Version 1)
Quarter: 2023Q2

REPORT INFORMATION
  Report Type: Report from Study
  Country: CA (occurrence: CA)
  Receive Date: 20230509
  Receipt Date: 20230509
  Transmission Date: 20230722
  Serious: Yes (Hospitalization, Other)
  Sender: FDA-Public Use
  Company Number: CA-ABBVIE-4757193

PATIENT
  Age: 27 Year
  Sex: Male

DRUGS (2)
  1. SKYRIZI [Suspect]
     Active Substance: RISANKIZUMAB-RZAA
     Indication: Crohn^s disease
     Route: 042
     Dates: start: 20230406
  2. CORTISONE [Concomitant]
     Active Substance: CORTISONE
     Indication: Product used for unknown indication

REACTIONS (5)
  - Intestinal obstruction [Recovering/Resolving]
  - Gastrointestinal inflammation [Unknown]
  - Wound [Unknown]
  - Fatigue [Unknown]
  - Ostomy bag placement [Unknown]

NARRATIVE: CASE EVENT DATE: 20230406
